FAERS Safety Report 7969716-4 (Version None)
Quarter: 2011Q4

REPORT INFORMATION
  Report Type: 
  Country: None (occurrence: None)
  Receive Date: 20111212
  Receipt Date: 20111207
  Transmission Date: 20120403
  Serious: Yes (Other)
  Sender: FDA-Public Use
  Company Number: GR-TEVA-310787ISR

PATIENT
  Age: 11 Year
  Sex: Male

DRUGS (17)
  1. CISPLATIN [Suspect]
     Dates: start: 20020201
  2. PROCARBAZINE HYDROCHLORIDE [Suspect]
     Indication: HODGKIN'S DISEASE
     Dates: start: 20000101
  3. DOXORUBICIN HCL [Suspect]
     Indication: HODGKIN'S DISEASE
     Dates: start: 20000101
  4. CHLORMETHINE [Suspect]
     Indication: HODGKIN'S DISEASE
     Dates: start: 20000101, end: 20010101
  5. CARMUSTINE [Suspect]
     Indication: HODGKIN'S DISEASE RECURRENT
     Dates: start: 20020501
  6. VINCRISTINE [Suspect]
     Indication: HODGKIN'S DISEASE
     Dates: start: 20000101
  7. DACARBAZINE [Suspect]
     Indication: HODGKIN'S DISEASE
     Dates: start: 20000101
  8. ETOPOSIDE [Suspect]
     Dates: start: 20020501
  9. CYCLOPHOSPHAMIDE [Suspect]
     Indication: HODGKIN'S DISEASE
     Dates: start: 20000101
  10. BLEOMYCIN SULFATE [Suspect]
     Indication: HODGKIN'S DISEASE
     Dates: start: 20000101
  11. IFOSFAMIDE [Suspect]
     Indication: HODGKIN'S DISEASE RECURRENT
     Dates: start: 20020201
  12. CYTARABINE [Suspect]
     Indication: HODGKIN'S DISEASE RECURRENT
     Dates: start: 20020501
  13. DEXAMETHASONE [Suspect]
     Indication: HODGKIN'S DISEASE RECURRENT
     Dates: start: 20020201
  14. MELPHALAN HYDROCHLORIDE [Suspect]
     Indication: HODGKIN'S DISEASE RECURRENT
     Dates: start: 20020501
  15. PREDNISONE TAB [Suspect]
     Indication: HODGKIN'S DISEASE
     Dates: start: 20000101
  16. VINBLASTINE SULFATE [Suspect]
     Indication: HODGKIN'S DISEASE
     Dates: start: 20000101
  17. ETOPOSIDE [Suspect]
     Indication: HODGKIN'S DISEASE RECURRENT
     Dates: start: 20020201

REACTIONS (1)
  - MYELODYSPLASTIC SYNDROME [None]
